FAERS Safety Report 7591914 (Version 2)
Quarter: 2016Q3

REPORT INFORMATION
  Report Type: Report from Study
  Country: US (occurrence: US)
  Receive Date: 20100917
  Receipt Date: 20160930
  Transmission Date: 20161109
  Serious: No
  Sender: FDA-Public Use
  Company Number: US-ASTRAZENECA-2010SE23832

PATIENT
  Age: 789 Month
  Sex: Female

DRUGS (7)
  1. AMITIZA [Concomitant]
     Active Substance: LUBIPROSTONE
  2. CRESTOR [Suspect]
     Active Substance: ROSUVASTATIN CALCIUM
     Indication: BLOOD CHOLESTEROL INCREASED
     Route: 048
     Dates: start: 2002
  3. SEROQUEL [Suspect]
     Active Substance: QUETIAPINE FUMARATE
     Route: 048
  4. LIPITOR [Concomitant]
     Active Substance: ATORVASTATIN CALCIUM
  5. SEROQUEL [Suspect]
     Active Substance: QUETIAPINE FUMARATE
     Dosage: 300.0MG UNKNOWN
     Route: 048
  6. LYNZESS [Concomitant]
  7. SEROQUEL [Suspect]
     Active Substance: QUETIAPINE FUMARATE
     Dosage: 400.0MG UNKNOWN
     Route: 048

REACTIONS (9)
  - Basedow^s disease [Unknown]
  - Drug hypersensitivity [Unknown]
  - Insomnia [Unknown]
  - Emotional disorder [Unknown]
  - Thyroid disorder [Unknown]
  - Diabetes mellitus [Unknown]
  - Drug dose omission [Unknown]
  - Weight decreased [Unknown]
  - Drug ineffective [Unknown]

NARRATIVE: CASE EVENT DATE: 201603
